FAERS Safety Report 17502016 (Version 1)
Quarter: 2020Q1

REPORT INFORMATION
  Report Type: Spontaneous
  Country: US (occurrence: US)
  Receive Date: 20200305
  Receipt Date: 20200305
  Transmission Date: 20200409
  Serious: Yes (Other)
  Sender: FDA-Public Use
  Company Number: None

PATIENT
  Age: 85 Year
  Sex: Male
  Weight: 83.25 kg

DRUGS (12)
  1. MONTELUKAST SOD 10MG [Concomitant]
     Active Substance: MONTELUKAST SODIUM
  2. ATORVASTATIN 40MG [Concomitant]
     Active Substance: ATORVASTATIN
  3. IRON 325MG [Concomitant]
  4. BIOTIN 5000 MCG [Concomitant]
  5. PEPCID [Concomitant]
     Active Substance: FAMOTIDINE
  6. MONTELUKAST SOD 10 MG [Suspect]
     Active Substance: MONTELUKAST SODIUM
     Indication: SEASONAL ALLERGY
     Dosage: ?          QUANTITY:1 TABLET(S);?
     Route: 048
     Dates: start: 20081130
  7. FIBER 1 CAPSULE [Concomitant]
  8. TERAZOSIN HCL 5MG CAP SAND [Concomitant]
     Active Substance: TERAZOSIN HYDROCHLORIDE
  9. DILTIAZEM HCL ER CP 120MG [Concomitant]
  10. ACIDOPHILUS PROBIOTIC 100M [Concomitant]
  11. APIXABAN/ELIQUIS 5MG [Concomitant]
  12. XYZAL [Concomitant]
     Active Substance: LEVOCETIRIZINE DIHYDROCHLORIDE

REACTIONS (2)
  - Nightmare [None]
  - Sleep disorder [None]

NARRATIVE: CASE EVENT DATE: 20200304
